FAERS Safety Report 5140940-1 (Version None)
Quarter: 2006Q4

REPORT INFORMATION
  Report Type: 
  Country: None (occurrence: None)
  Receive Date: 20061025
  Receipt Date: 20061025
  Transmission Date: 20070319
  Serious: Yes (Hospitalization)
  Sender: FDA-Public Use
  Company Number: None

PATIENT
  Age: 86 Year
  Sex: Male
  Weight: 87.9978 kg

DRUGS (4)
  1. LISINOPRIL [Suspect]
     Indication: CARDIAC FAILURE CONGESTIVE
     Dosage: 2.5 MG  DAILY
     Dates: start: 20020801, end: 20060915
  2. LISINOPRIL [Suspect]
     Indication: DIABETES MELLITUS
     Dosage: 2.5 MG  DAILY
     Dates: start: 20020801, end: 20060915
  3. LISINOPRIL [Suspect]
     Indication: HYPERTENSION
     Dosage: 2.5 MG  DAILY
     Dates: start: 20020801, end: 20060915
  4. FUROSEMIDE [Suspect]
     Indication: CARDIAC FAILURE CONGESTIVE
     Dosage: 60MG  DAILY
     Dates: start: 20030101, end: 20060915

REACTIONS (2)
  - HYPERKALAEMIA [None]
  - RENAL FAILURE ACUTE [None]
